FAERS Safety Report 10046627 (Version 1)
Quarter: 2014Q1

REPORT INFORMATION
  Report Type: Spontaneous
  Country: US (occurrence: None)
  Receive Date: 20140326
  Receipt Date: 20140326
  Transmission Date: 20141002
  Serious: Yes (Hospitalization)
  Sender: FDA-Public Use
  Company Number: 2013-US-0482

PATIENT
  Age: 14 Year
  Sex: Female
  Weight: 72.1 kg

DRUGS (24)
  1. SANCUSO [Suspect]
     Indication: DRUG LEVEL
     Dosage: X1 PER 1 DAY
     Dates: start: 20130908, end: 20130912
  2. ACETAMINOPHEN [Concomitant]
  3. AMLODIPINE [Concomitant]
  4. ATIVAN (LORAZEPAM) [Concomitant]
  5. BACITRACIN (BACITRACIN) [Concomitant]
  6. DILAUDID (HYDROMORPHONE HYDROCHLORIDE) [Concomitant]
  7. DIPHENHYDRAMINE (DIPHENHYDRAMINE) [Concomitant]
  8. FAMOTIDINE (GLUCOMANNAN) [Concomitant]
  9. GRANISETRON (GRANISETRON HYDROCHLORIDE) [Concomitant]
  10. LMX (LIGNOCAINE) [Concomitant]
  11. MAG-OX (MAGNESIUM OXIDE) [Concomitant]
  12. MIRALAX (POLYETHYLENE GLYCOL) [Concomitant]
  13. MITOTANE (CLORPRENALINE HYDROCHLORIDE) [Concomitant]
  14. ONDANSETRON [Concomitant]
  15. PEPCID (GLUCOMANNAN) [Concomitant]
  16. REGLAN (METOCLOPRAMIDE) [Concomitant]
  17. VITAMIN D [Concomitant]
  18. SULFAMETHOXAZONE- TRIMETHOPRIM [Concomitant]
  19. IBUPROFEN [Concomitant]
  20. HYDRALAZINE [Concomitant]
  21. ALTEPLASE [Concomitant]
  22. CALCIUM CARBONATE [Concomitant]
  23. AMITRIPTYLINE [Concomitant]
  24. LORAZEPAM [Concomitant]

REACTIONS (4)
  - Tooth infection [None]
  - Cough [None]
  - Nausea [None]
  - Pneumothorax [None]
